FAERS Safety Report 7633199-4 (Version None)
Quarter: 2011Q3

REPORT INFORMATION
  Report Type: 
  Country: None (occurrence: None)
  Receive Date: 20110715
  Receipt Date: 20110706
  Transmission Date: 20111222
  Serious: No
  Sender: FDA-Public Use
  Company Number: 2011-00923

PATIENT
  Sex: Female

DRUGS (5)
  1. ZICAM COLD REMEDY GEL SWABS [Suspect]
     Dosage: 1 DOSE, 1 DOSE
     Dates: start: 20110705, end: 20110705
  2. ZICAM COLD REMEDY ORAL MIST [Suspect]
     Dosage: 3 DOSES, 3 DOSES
     Dates: start: 20110705, end: 20110705
  3. SYNTHROID [Concomitant]
  4. ESTROGENIC SUBSTANCE [Concomitant]
  5. PROGESTERONE [Concomitant]

REACTIONS (2)
  - AGEUSIA [None]
  - ANOSMIA [None]
